FAERS Safety Report 5191658-0 (Version None)
Quarter: 2006Q4

REPORT INFORMATION
  Report Type: 
  Country: None (occurrence: None)
  Receive Date: 20061219
  Receipt Date: 20061206
  Transmission Date: 20070319
  Serious: Yes (Congenital Anomaly)
  Sender: FDA-Public Use
  Company Number: 2006152365

PATIENT
  Age: 6 Month
  Sex: Female

DRUGS (5)
  1. VIRACEPT 625 (NELFINAVIR MESILATE) [Suspect]
     Dosage: 250 MG, ORAL
     Route: 048
  2. VIDEX [Suspect]
     Dosage: ORAL
     Route: 048
  3. ZERIT [Suspect]
     Dosage: ORAL
     Route: 048
  4. RETROVIR [Suspect]
     Dosage: ORAL
     Route: 048
  5. VIRAMUNE [Suspect]
     Dosage: ORAL
     Route: 048

REACTIONS (3)
  - DRUG EXPOSURE DURING PREGNANCY [None]
  - NYSTAGMUS [None]
  - TRANSMISSION OF DRUG VIA SEMEN [None]
